FAERS Safety Report 13775330 (Version 1)
Quarter: 2017Q3

REPORT INFORMATION
  Report Type: Spontaneous
  Country: US (occurrence: US)
  Receive Date: 20170720
  Receipt Date: 20170720
  Transmission Date: 20171127
  Serious: No
  Sender: FDA-Public Use
  Company Number: None

PATIENT
  Age: 57 Year
  Sex: Male

DRUGS (1)
  1. STELARA [Suspect]
     Active Substance: USTEKINUMAB
     Indication: PSORIASIS
     Dosage: 90MG EVERY 12 WEEKS SUBQ
     Route: 058
     Dates: start: 20160911

REACTIONS (2)
  - Increased tendency to bruise [None]
  - Skin atrophy [None]

NARRATIVE: CASE EVENT DATE: 20160911
